FAERS Safety Report 7982423-7 (Version None)
Quarter: 2011Q4

REPORT INFORMATION
  Report Type: 
  Country: None (occurrence: None)
  Receive Date: 20111215
  Receipt Date: 20111208
  Transmission Date: 20120403
  Serious: Yes (Hospitalization, Other)
  Sender: FDA-Public Use
  Company Number: PHHY2011JP95583

PATIENT
  Sex: Male
  Weight: 59 kg

DRUGS (5)
  1. LIPITOR [Concomitant]
     Indication: DYSLIPIDAEMIA
     Dosage: 5 MG, QD
     Route: 048
     Dates: start: 20100628, end: 20110721
  2. LIPITOR [Concomitant]
     Dosage: 5 MG
     Route: 048
     Dates: start: 20110815
  3. CANDESARTAN CILEXETIL [Concomitant]
     Indication: HYPERTENSION
     Dosage: 2 MG, QD
     Route: 048
     Dates: start: 20041111, end: 20110721
  4. LAMISIL [Suspect]
     Indication: ONYCHOMYCOSIS
     Dosage: 125 MG, QD
     Route: 048
     Dates: start: 20110516, end: 20110601
  5. CANDESARTAN CILEXETIL [Concomitant]
     Dosage: 2 MG
     Route: 048
     Dates: start: 20110815

REACTIONS (14)
  - GAMMA-GLUTAMYLTRANSFERASE ABNORMAL [None]
  - PLEURAL EFFUSION [None]
  - OEDEMA [None]
  - PNEUMONIA [None]
  - LIVER DISORDER [None]
  - SPEECH DISORDER [None]
  - ALANINE AMINOTRANSFERASE INCREASED [None]
  - PRURITUS [None]
  - ASPARTATE AMINOTRANSFERASE INCREASED [None]
  - PYREXIA [None]
  - JAUNDICE [None]
  - BLOOD PRESSURE DECREASED [None]
  - BLOOD ALKALINE PHOSPHATASE INCREASED [None]
  - BLOOD BILIRUBIN INCREASED [None]
